FAERS Safety Report 6144468-1 (Version None)
Quarter: 2009Q2

REPORT INFORMATION
  Report Type: 
  Country: None (occurrence: None)
  Receive Date: 20090401
  Receipt Date: 20090212
  Transmission Date: 20091009
  Serious: Yes (Other)
  Sender: FDA-Public Use
  Company Number: 185652USA

PATIENT

DRUGS (1)
  1. RISPERIDONE [Suspect]

REACTIONS (1)
  - PSYCHOTIC DISORDER [None]
